FAERS Safety Report 5254753-3 (Version None)
Quarter: 2007Q1

REPORT INFORMATION
  Report Type: 
  Country: None (occurrence: None)
  Receive Date: 20070228
  Receipt Date: 20070221
  Transmission Date: 20070707
  Serious: Yes (Hospitalization)
  Sender: FDA-Public Use
  Company Number: US019026

PATIENT
  Age: 49 Year
  Sex: Female

DRUGS (18)
  1. PROVIGIL [Suspect]
     Indication: NARCOLEPSY
     Dosage: 100 MG QD ORAL
     Route: 048
     Dates: start: 20061103, end: 20061127
  2. VICODIN [Concomitant]
  3. PREDNISONE [Concomitant]
  4. PROTONIX /01263201/ [Concomitant]
  5. CELEBREX [Concomitant]
  6. CYMBALTA [Concomitant]
  7. PROPRANOLOL [Concomitant]
  8. CLORAZEPATE [Concomitant]
  9. IMURAN /00001501/ [Concomitant]
  10. FENTANYL TRANSDERMAL SYSTEM [Concomitant]
  11. REQUIP [Concomitant]
  12. NASONEX [Concomitant]
  13. ECLIZINE [Concomitant]
  14. NYSTATIN [Concomitant]
  15. MEDICAL MARIJUANA [Concomitant]
  16. FOLIC ACID [Concomitant]
  17. IMODIUM /00384302/ [Concomitant]
  18. FLUCONAZOLE [Concomitant]

REACTIONS (11)
  - ABDOMINAL PAIN [None]
  - BETA HAEMOLYTIC STREPTOCOCCAL INFECTION [None]
  - CANDIDIASIS [None]
  - CULTURE THROAT POSITIVE [None]
  - DIARRHOEA [None]
  - ERYTHEMA MULTIFORME [None]
  - STAPHYLOCOCCAL INFECTION [None]
  - TOXIC EPIDERMAL NECROLYSIS [None]
  - TOXIC SHOCK SYNDROME [None]
  - URINE KETONE BODY PRESENT [None]
  - VULVOVAGINAL MYCOTIC INFECTION [None]
